FAERS Safety Report 21297278 (Version 1)
Quarter: 2022Q3

REPORT INFORMATION
  Report Type: Spontaneous
  Country: US (occurrence: None)
  Receive Date: 20220902
  Receipt Date: 20220902
  Transmission Date: 20221027
  Serious: Yes (Hospitalization)
  Sender: FDA-Public Use
  Company Number: None

PATIENT
  Sex: Male

DRUGS (3)
  1. ENBREL [Suspect]
     Active Substance: ETANERCEPT
     Indication: Psoriatic arthropathy
     Route: 058
     Dates: start: 20200222
  2. METHOTREXATE [Concomitant]
     Active Substance: METHOTREXATE
  3. OXAPROZIN TAB [Concomitant]

REACTIONS (1)
  - Nephrolithiasis [None]
